FAERS Safety Report 17501461 (Version 4)
Quarter: 2020Q2

REPORT INFORMATION
  Report Type: Spontaneous
  Country: US (occurrence: US)
  Receive Date: 20200305
  Receipt Date: 20200520
  Transmission Date: 20200713
  Serious: Yes (Hospitalization, Other)
  Sender: FDA-Public Use
  Company Number: US-PFIZER INC-2020096608

PATIENT
  Age: 76 Year
  Sex: Female

DRUGS (3)
  1. DILANTIN [Suspect]
     Active Substance: PHENYTOIN
     Dosage: 400 MG, ALTERNATE DAY [ONE DAY SHE TOOK 4 A DAY (400 MG) WHILE THE OTHER SHE TOOK 3 A DAY (300 MG)]
  2. DILANTIN [Suspect]
     Active Substance: PHENYTOIN
     Dosage: 300 MG, ALTERNATE DAY [ONE DAY SHE TOOK 4 A DAY (400 MG) WHILE THE OTHER SHE TOOK 3 A DAY (300 MG)]
  3. DILANTIN [Suspect]
     Active Substance: PHENYTOIN
     Dosage: 1 DF, 4X/DAY (BREAKFAST, LUNCH, DINNER, BEDTIME)

REACTIONS (5)
  - Bone disorder [Unknown]
  - Intentional product misuse [Unknown]
  - Bone density decreased [Unknown]
  - Femur fracture [Unknown]
  - Rash [Unknown]

NARRATIVE: CASE EVENT DATE: 20181219
